FAERS Safety Report 4624331-5 (Version None)
Quarter: 2005Q1

REPORT INFORMATION
  Report Type: 
  Country: None (occurrence: None)
  Receive Date: 20050330
  Receipt Date: 20050330
  Transmission Date: 20050727
  Serious: Yes (Hospitalization)
  Sender: FDA-Public Use
  Company Number: None

PATIENT
  Age: 26 Year
  Sex: Female
  Weight: 49.4421 kg

DRUGS (5)
  1. CYMBALTA [Suspect]
     Dosage: ONE PO QD
     Route: 048
     Dates: start: 20050224, end: 20050311
  2. TRAZODONE HCL [Concomitant]
  3. THORAZINE [Concomitant]
  4. ALEVE [Concomitant]
  5. MYLANTA [Concomitant]

REACTIONS (3)
  - CONVULSION [None]
  - SEROTONIN SYNDROME [None]
  - TREMOR [None]
